FAERS Safety Report 5165635-X (Version None)
Quarter: 2006Q4

REPORT INFORMATION
  Report Type: 
  Country: None (occurrence: None)
  Receive Date: 20061206
  Receipt Date: 20061109
  Transmission Date: 20070319
  Serious: Yes (Other)
  Sender: FDA-Public Use
  Company Number: US-ROCHE-470911

PATIENT
  Age: 30 Year
  Sex: Female

DRUGS (1)
  1. ACCUTANE [Suspect]
     Indication: DRUG USE FOR UNKNOWN INDICATION
     Dosage: PATIENT TOOK ISOTRETINOIN AS A TEENAGER.
     Route: 065

REACTIONS (2)
  - ANOVULATORY CYCLE [None]
  - INFERTILITY [None]
